FAERS Safety Report 8129623-3 (Version None)
Quarter: 2012Q1

REPORT INFORMATION
  Report Type: 
  Country: None (occurrence: None)
  Receive Date: 20120210
  Receipt Date: 20120209
  Transmission Date: 20120608
  Serious: Yes (Other)
  Sender: FDA-Public Use
  Company Number: GB-GLAXOSMITHKLINE-B0780302A

PATIENT
  Age: 29 Year
  Sex: Female

DRUGS (1)
  1. ACYCLOVIR [Suspect]
     Indication: GENITAL HERPES
     Dosage: 1200MG PER DAY
     Route: 048
     Dates: start: 20120103, end: 20120108

REACTIONS (1)
  - ABORTION SPONTANEOUS [None]
